FAERS Safety Report 4829204-0 (Version None)
Quarter: 2005Q4

REPORT INFORMATION
  Report Type: 
  Country: None (occurrence: None)
  Receive Date: 20051027
  Receipt Date: 20050928
  Transmission Date: 20060501
  Serious: Yes (Other)
  Sender: FDA-Public Use
  Company Number: ZICO001279

PATIENT
  Sex: Female

DRUGS (3)
  1. PRIALT [Suspect]
     Indication: DRUG USE FOR UNKNOWN INDICATION
     Dosage: INTRATHECAL
     Route: 037
     Dates: start: 20050101
  2. NEURONTIN [Concomitant]
  3. TRICYCLIC (TRICYCLIC) [Concomitant]

REACTIONS (2)
  - PSYCHOTIC DISORDER [None]
  - SEDATION [None]
